FAERS Safety Report 20487219 (Version 1)
Quarter: 2022Q1

REPORT INFORMATION
  Report Type: Spontaneous
  Country: ES (occurrence: ES)
  Receive Date: 20220217
  Receipt Date: 20220217
  Transmission Date: 20220423
  Serious: Yes (Death, Hospitalization)
  Sender: FDA-Public Use
  Company Number: ES-AEMPS-1025401

PATIENT
  Age: 66 Year
  Sex: Female
  Weight: 60 kg

DRUGS (6)
  1. ALLOPURINOL [Suspect]
     Active Substance: ALLOPURINOL
     Indication: Hyperuricaemia
     Dosage: 200 MILLIGRAM, DAILY
     Route: 048
     Dates: start: 20210831, end: 20210930
  2. CEFTRIAXONE [Suspect]
     Active Substance: CEFTRIAXONE
     Indication: Urinary tract infection
     Dosage: UNK
     Route: 042
     Dates: start: 20210927, end: 20210930
  3. CEFTRIAXONE [Suspect]
     Active Substance: CEFTRIAXONE
     Indication: Urinary tract infection
  4. CLEXANE 6.000 UI (60 mg)/ 0,6 ml SOLUCION INYECTABLE EN JERINGA PRE... [Concomitant]
     Indication: Thrombophlebitis
     Dosage: 60 MG, ONE TIME A DAY
     Route: 058
     Dates: start: 20210823, end: 20210929
  5. METOCLOPRAMIDA KERN PHARMA 1 mg/ml SOLUCION ORAL EFG, 1 frasco de 2... [Concomitant]
     Indication: Vomiting
     Dosage: UNK
     Route: 048
     Dates: start: 20210914, end: 20210927
  6. OMEPRAZOL ABDRUG 20 MG CAPSULAS DURAS GASTRORRESISTENTES EFG , 14 c... [Concomitant]
     Indication: Product used for unknown indication
     Dosage: 20 MG, 2 TIMES A DAY
     Route: 042
     Dates: start: 20210914, end: 20210927

REACTIONS (2)
  - Toxic epidermal necrolysis [Fatal]
  - Stevens-Johnson syndrome [Recovering/Resolving]

NARRATIVE: CASE EVENT DATE: 20210930
